FAERS Safety Report 22218429 (Version 1)
Quarter: 2023Q2

REPORT INFORMATION
  Report Type: Spontaneous
  Country: US (occurrence: None)
  Receive Date: 20230414
  Receipt Date: 20230414
  Transmission Date: 20230722
  Serious: Yes (Other)
  Sender: FDA-Public Use
  Company Number: None

PATIENT
  Age: 83 Year
  Sex: Female
  Weight: 50.4 kg

DRUGS (1)
  1. RIVASTIGMINE [Suspect]
     Active Substance: RIVASTIGMINE
     Dosage: FREQUENCY : DAILY;?
     Route: 062
     Dates: start: 20190705, end: 20221011

REACTIONS (6)
  - Weight decreased [None]
  - Decreased appetite [None]
  - Nausea [None]
  - Vomiting [None]
  - Fatigue [None]
  - Myocardial infarction [None]

NARRATIVE: CASE EVENT DATE: 20220312
